FAERS Safety Report 24248083 (Version 1)
Quarter: 2024Q3

REPORT INFORMATION
  Report Type: Spontaneous
  Country: MA (occurrence: MA)
  Receive Date: 20240826
  Receipt Date: 20240826
  Transmission Date: 20241017
  Serious: Yes (Hospitalization, Other)
  Sender: ORGANON
  Company Number: MA-MLMSERVICE-20240812-PI158339-00064-1

PATIENT
  Sex: Female
  Weight: 3.1 kg

DRUGS (1)
  1. BETAMETHASONE ACETATE\BETAMETHASONE SODIUM PHOSPHATE [Suspect]
     Active Substance: BETAMETHASONE ACETATE\BETAMETHASONE SODIUM PHOSPHATE
     Dosage: TWO INTRAMUSCULAR INJECTIONS OF BETAMETHASONE 12 MG, REPEATED AT A 24-HOUR INTERVAL
     Route: 064

REACTIONS (1)
  - Hypertrophic cardiomyopathy [Recovered/Resolved]
